FAERS Safety Report 4612358-9 (Version None)
Quarter: 2005Q1

REPORT INFORMATION
  Report Type: 
  Country: None (occurrence: None)
  Receive Date: 20050308
  Receipt Date: 20041216
  Transmission Date: 20050727
  Serious: Yes (Other)
  Sender: FDA-Public Use
  Company Number: 2004UW23746

PATIENT
  Age: 54 Year
  Sex: Female
  Weight: 56.699 kg

DRUGS (1)
  1. CRESTOR [Suspect]
     Indication: BLOOD CHOLESTEROL INCREASED
     Dosage: 10 MG QD PO
     Route: 048
     Dates: start: 20041001

REACTIONS (2)
  - CHROMATURIA [None]
  - URINARY TRACT INFECTION [None]
